FAERS Safety Report 7464906-1 (Version None)
Quarter: 2011Q2

REPORT INFORMATION
  Report Type: 
  Country: None (occurrence: None)
  Receive Date: 20110509
  Receipt Date: 20110325
  Transmission Date: 20111010
  Serious: Yes (Hospitalization, Other)
  Sender: FDA-Public Use
  Company Number: US-BAYER-2011-007715

PATIENT
  Age: 32 Year
  Sex: Female
  Weight: 117.1 kg

DRUGS (5)
  1. ZOLOFT [Concomitant]
  2. XANAX [Concomitant]
  3. YASMIN [Suspect]
     Indication: MENSTRUATION IRREGULAR
     Dosage: UNK
     Dates: start: 20070301, end: 20070901
  4. ACIPHEX [Concomitant]
  5. YASMIN [Suspect]
     Indication: ORAL CONTRACEPTION
     Dosage: UNK
     Route: 048
     Dates: start: 20050401, end: 20051101

REACTIONS (5)
  - MUSCULOSKELETAL PAIN [None]
  - PULMONARY EMBOLISM [None]
  - TACHYCARDIA [None]
  - DYSPNOEA [None]
  - BACK PAIN [None]
